FAERS Safety Report 8459306-1 (Version None)
Quarter: 2012Q2

REPORT INFORMATION
  Report Type: 
  Country: None (occurrence: None)
  Receive Date: 20120622
  Receipt Date: 20120615
  Transmission Date: 20120825
  Serious: Yes (Hospitalization)
  Sender: FDA-Public Use
  Company Number: FR-PFIZER INC-2012144284

PATIENT
  Age: 54 Year
  Sex: Female

DRUGS (3)
  1. INNOHEP [Concomitant]
     Dosage: UNK
     Route: 058
     Dates: start: 20120402, end: 20120501
  2. CLINDAMYCIN HCL [Suspect]
     Indication: PROPIONIBACTERIUM INFECTION
     Dosage: 750 MG, 1X/DAY
     Route: 048
     Dates: start: 20120423, end: 20120507
  3. TARDYFERON-FOL [Concomitant]
     Dosage: UNK
     Dates: start: 20120402, end: 20120501

REACTIONS (1)
  - DRUG RASH WITH EOSINOPHILIA AND SYSTEMIC SYMPTOMS [None]
